FAERS Safety Report 4444764-X (Version None)
Quarter: 2004Q3

REPORT INFORMATION
  Report Type: 
  Country: None (occurrence: None)
  Receive Date: 20040909
  Receipt Date: 20040831
  Transmission Date: 20050211
  Serious: Yes (Other)
  Sender: FDA-Public Use
  Company Number: US-JNJFOC-20040900369

PATIENT
  Age: 55 Year
  Sex: Male

DRUGS (3)
  1. DURAGESIC [Suspect]
     Route: 062
  2. DILAUDID [Concomitant]
     Indication: PAIN
     Dosage: AS NEEDED
     Route: 049
  3. FLEXERIL [Concomitant]
     Indication: MUSCLE SPASMS
     Dosage: 3 IN 1 DAY
     Route: 049

REACTIONS (11)
  - APPLICATION SITE DERMATITIS [None]
  - ASTHENIA [None]
  - COUGH [None]
  - FAECAL INCONTINENCE [None]
  - HALLUCINATION [None]
  - HOSTILITY [None]
  - MEMORY IMPAIRMENT [None]
  - OEDEMA PERIPHERAL [None]
  - PHARMACEUTICAL PRODUCT COMPLAINT [None]
  - RHINORRHOEA [None]
  - URINARY INCONTINENCE [None]
